FAERS Safety Report 23799381 (Version 1)
Quarter: 2024Q2

REPORT INFORMATION
  Report Type: Spontaneous
  Country: US (occurrence: None)
  Receive Date: 20240428
  Receipt Date: 20240428
  Transmission Date: 20240715
  Serious: Yes (Hospitalization)
  Sender: FDA-Public Use
  Company Number: None

PATIENT
  Age: 93 Year
  Sex: Male
  Weight: 79 kg

DRUGS (1)
  1. DULOXETINE [Suspect]
     Active Substance: DULOXETINE
     Indication: Pain
     Dosage: 20 MG BBID PO
     Route: 048
     Dates: start: 20170518, end: 20220225

REACTIONS (4)
  - Jaundice [None]
  - Liver function test increased [None]
  - Therapy cessation [None]
  - Drug-induced liver injury [None]

NARRATIVE: CASE EVENT DATE: 20220222
